FAERS Safety Report 25473493 (Version 1)
Quarter: 2025Q2

REPORT INFORMATION
  Report Type: Spontaneous
  Country: US (occurrence: US)
  Receive Date: 20250624
  Receipt Date: 20250624
  Transmission Date: 20250716
  Serious: No
  Sender: PFIZER
  Company Number: US-PFIZER INC-202500125988

PATIENT
  Age: 78 Year
  Sex: Female
  Weight: 51.701 kg

DRUGS (1)
  1. MEDROL [Suspect]
     Active Substance: METHYLPREDNISOLONE
     Dosage: 24 MG, DAILY (6 TABLETS OF 4 MG EACH)

REACTIONS (1)
  - Insomnia [Unknown]
